FAERS Safety Report 6360046-3 (Version None)
Quarter: 2009Q3

REPORT INFORMATION
  Report Type: 
  Country: None (occurrence: None)
  Receive Date: 20090917
  Receipt Date: 20090909
  Transmission Date: 20100115
  Serious: Yes (Hospitalization)
  Sender: FDA-Public Use
  Company Number: PHEH2009US07369

PATIENT
  Sex: Female
  Weight: 72 kg

DRUGS (6)
  1. EXFORGE [Suspect]
     Indication: HYPERTENSION
     Dosage: UNK
  2. EXFORGE [Suspect]
     Dosage: NO TREATMENT
  3. EXFORGE [Suspect]
     Dosage: UNK
  4. REBIF [Suspect]
     Indication: MULTIPLE SCLEROSIS
     Dosage: 44 MCG 3 IN 1 WEEK
     Route: 058
     Dates: start: 20071202
  5. LYRICA [Concomitant]
     Indication: MUSCLE SPASMS
     Dosage: UNK
  6. CRESTOR [Concomitant]
     Indication: BLOOD CHOLESTEROL INCREASED
     Dosage: UNK

REACTIONS (9)
  - BALANCE DISORDER [None]
  - BLOOD COUNT ABNORMAL [None]
  - CHEST PAIN [None]
  - DIZZINESS [None]
  - DYSPNOEA [None]
  - GASTROOESOPHAGEAL REFLUX DISEASE [None]
  - HIATUS HERNIA [None]
  - HYPOTENSION [None]
  - MEMORY IMPAIRMENT [None]
